FAERS Safety Report 17326609 (Version 1)
Quarter: 2020Q1

REPORT INFORMATION
  Report Type: Spontaneous
  Country: ID (occurrence: ID)
  Receive Date: 20200127
  Receipt Date: 20200127
  Transmission Date: 20200409
  Serious: Yes (Other)
  Sender: FDA-Public Use
  Company Number: ID-GLASSHOUSE PHARMACEUTICALS LIMITED CA-2020GLH00003

PATIENT
  Age: 43 Year
  Sex: Male

DRUGS (2)
  1. BISOPROLOL [Concomitant]
     Active Substance: BISOPROLOL
     Indication: CORONARY ARTERY DISEASE
     Dosage: 2.5 MG, 1X/DAY
  2. CLINDAMYCIN. [Suspect]
     Active Substance: CLINDAMYCIN
     Indication: PHARYNGITIS
     Route: 048

REACTIONS (1)
  - Oesophageal ulcer [Recovered/Resolved]
